FAERS Safety Report 6377588-7 (Version None)
Quarter: 2009Q3

REPORT INFORMATION
  Report Type: 
  Country: None (occurrence: None)
  Receive Date: 20090923
  Receipt Date: 20090923
  Transmission Date: 20100115
  Serious: Yes (Life-Threatening)
  Sender: FDA-Public Use
  Company Number: None

PATIENT
  Age: 64 Year
  Sex: Male
  Weight: 113.4 kg

DRUGS (16)
  1. LORAZEPAM [Suspect]
     Indication: AGITATION
     Dosage: 0.5 MG IV X 1
     Dates: start: 20090725
  2. NAC INH [Concomitant]
  3. ALBUTEROL [Concomitant]
  4. CALCITRIOL [Concomitant]
  5. CEFEPIME [Concomitant]
  6. DOCUSATE [Concomitant]
  7. FENTANYL [Concomitant]
  8. IRON [Concomitant]
  9. INSULIN [Concomitant]
  10. METOPROLOL SUCCINATE [Concomitant]
  11. OXYBUTYNIN CHLORIDE [Concomitant]
  12. MIRALAX [Concomitant]
  13. PREVACID [Concomitant]
  14. QUETIAPINE FUMARATE [Concomitant]
  15. SALINE [Concomitant]
  16. APAP TAB [Concomitant]

REACTIONS (4)
  - APNOEA [None]
  - DYSPNOEA [None]
  - OXYGEN SATURATION DECREASED [None]
  - UNRESPONSIVE TO STIMULI [None]
